FAERS Safety Report 8353277-4 (Version None)
Quarter: 2012Q2

REPORT INFORMATION
  Report Type: 
  Country: None (occurrence: None)
  Receive Date: 20120511
  Receipt Date: 20101129
  Transmission Date: 20120825
  Serious: No
  Sender: FDA-Public Use
  Company Number: US-TEVA-2010006198

PATIENT
  Sex: Female
  Weight: 54.48 kg

DRUGS (2)
  1. NUVIGIL [Suspect]
     Indication: CIRCADIAN RHYTHM SLEEP DISORDER
     Dosage: 250 MILLIGRAM;
     Route: 048
     Dates: start: 20100701
  2. NEOCON [Concomitant]
     Route: 048
     Dates: start: 20080101

REACTIONS (1)
  - MENSTRUAL DISORDER [None]
